FAERS Safety Report 4871503-0 (Version None)
Quarter: 2005Q4

REPORT INFORMATION
  Report Type: 
  Country: None (occurrence: None)
  Receive Date: 20051229
  Receipt Date: 20051215
  Transmission Date: 20060501
  Serious: Yes (Hospitalization)
  Sender: FDA-Public Use
  Company Number: US200512002760

PATIENT
  Sex: Female

DRUGS (4)
  1. HUMULIN 70/30 [Suspect]
     Dosage: 50 U, EACH MORNING
     Dates: end: 20050101
  2. HUMULIN 70/30 [Suspect]
     Dosage: 30 U, EACH EVENING
  3. HUMULIN R [Suspect]
     Dates: start: 20050101
  4. INSULIN GLARGINE [Concomitant]

REACTIONS (4)
  - ANKLE FRACTURE [None]
  - BLOOD GLUCOSE DECREASED [None]
  - BLOOD GLUCOSE INCREASED [None]
  - FALL [None]
